FAERS Safety Report 4505488-3 (Version None)
Quarter: 2004Q4

REPORT INFORMATION
  Report Type: 
  Country: None (occurrence: None)
  Receive Date: 20041118
  Receipt Date: 20041118
  Transmission Date: 20050328
  Serious: No
  Sender: FDA-Public Use
  Company Number: None

PATIENT
  Age: 35 Year
  Sex: Female

DRUGS (1)
  1. MINOCYCLINE HCL [Suspect]
     Indication: ROSACEA
     Dosage: 100MG PO BID
     Route: 048

REACTIONS (4)
  - DIZZINESS [None]
  - GINGIVAL DISCOLOURATION [None]
  - LYMPHADENOPATHY [None]
  - VERTIGO [None]
